FAERS Safety Report 26097326 (Version 2)
Quarter: 2025Q4

REPORT INFORMATION
  Report Type: Spontaneous
  Country: US (occurrence: US)
  Receive Date: 20251127
  Receipt Date: 20251219
  Transmission Date: 20260118
  Serious: Yes (Other)
  Sender: TEVA
  Company Number: US-TEVA-VS-3395662

PATIENT
  Age: 41 Year
  Sex: Male

DRUGS (3)
  1. TRIHEXYPHENIDYL [Suspect]
     Active Substance: TRIHEXYPHENIDYL
     Indication: Product used for unknown indication
     Route: 065
  2. LITHIUM [Suspect]
     Active Substance: LITHIUM
     Indication: Bipolar I disorder
     Route: 065
  3. LEVODOPA [Suspect]
     Active Substance: LEVODOPA
     Indication: Osteoporosis
     Dosage: SELF TREATED HIMSELF BY INGESTING APPROXIMATELY TWO TEASPOONS OF 99% PURE ORAL LEVODOPA POWDER
     Route: 048

REACTIONS (7)
  - Intentional product misuse [Unknown]
  - Mental status changes [Recovering/Resolving]
  - Tachycardia [Recovering/Resolving]
  - Agitation [Recovering/Resolving]
  - Overdose [Unknown]
  - Hallucination [Recovering/Resolving]
  - Hypertension [Recovering/Resolving]
